FAERS Safety Report 20781233 (Version 1)
Quarter: 2022Q2

REPORT INFORMATION
  Report Type: Report from Study
  Country: FR (occurrence: FR)
  Receive Date: 20220504
  Receipt Date: 20220504
  Transmission Date: 20220721
  Serious: Yes (Hospitalization, Other)
  Sender: FDA-Public Use
  Company Number: FR-BRISTOL-MYERS SQUIBB COMPANY-2022-027104

PATIENT
  Age: 67 Year
  Sex: Male

DRUGS (1)
  1. NIVOLUMAB [Suspect]
     Active Substance: NIVOLUMAB
     Indication: Renal cell carcinoma
     Dosage: J1 =ANDGT; J28
     Dates: start: 20180803, end: 20191122

REACTIONS (2)
  - Pyelonephritis [Recovered/Resolved]
  - Pneumonia klebsiella [Recovering/Resolving]

NARRATIVE: CASE EVENT DATE: 20210719
